FAERS Safety Report 5066852-X (Version None)
Quarter: 2006Q3

REPORT INFORMATION
  Report Type: 
  Country: None (occurrence: None)
  Receive Date: 20060726
  Receipt Date: 20060713
  Transmission Date: 20061208
  Serious: Yes (Hospitalization)
  Sender: FDA-Public Use
  Company Number: 2006RL000259

PATIENT
  Age: 62 Year
  Sex: Male

DRUGS (7)
  1. NIZATIDINE [Suspect]
     Indication: GASTRIC ULCER
     Dosage: SEE IMAGE
     Route: 048
     Dates: start: 20060519, end: 20060501
  2. NIZATIDINE [Suspect]
     Indication: GASTRIC ULCER
     Dosage: SEE IMAGE
     Route: 048
     Dates: start: 20060523, end: 20060526
  3. ALLOPURINOL [Concomitant]
  4. ASPIRIN SOLUTION [Concomitant]
  5. CALCIUM CARBONATE [Concomitant]
  6. SEVELAMER HYDROCHLORIDE [Concomitant]
  7. METHYLDOPA [Concomitant]

REACTIONS (3)
  - PYREXIA [None]
  - THERAPY REGIMEN CHANGED [None]
  - WHITE BLOOD CELL COUNT DECREASED [None]
